FAERS Safety Report 5117456-1 (Version None)
Quarter: 2006Q3

REPORT INFORMATION
  Report Type: 
  Country: None (occurrence: None)
  Receive Date: 20060926
  Receipt Date: 20060907
  Transmission Date: 20061208
  Serious: No
  Sender: FDA-Public Use
  Company Number: US200609002298

PATIENT
  Sex: Female

DRUGS (1)
  1. CYMBALTA [Suspect]
     Indication: DEPRESSION
     Dosage: SEE IMAGE

REACTIONS (2)
  - BLOOD PRESSURE INCREASED [None]
  - URINE COLOUR ABNORMAL [None]
